FAERS Safety Report 12329747 (Version 2)
Quarter: 2016Q3

REPORT INFORMATION
  Report Type: Spontaneous
  Country: US (occurrence: US)
  Receive Date: 20160503
  Receipt Date: 20160701
  Transmission Date: 20161109
  Serious: Yes (Hospitalization)
  Sender: FDA-Public Use
  Company Number: US-CTI_01902_2016

PATIENT
  Sex: Female

DRUGS (11)
  1. PREDNISONE. [Concomitant]
     Active Substance: PREDNISONE
     Indication: CYSTIC FIBROSIS
     Dosage: DF
  2. LINEZOLID. [Concomitant]
     Active Substance: LINEZOLID
     Indication: CYSTIC FIBROSIS
     Dosage: DF
  3. BUDESONIDE. [Concomitant]
     Active Substance: BUDESONIDE
     Indication: CYSTIC FIBROSIS
     Dosage: DF
  4. NYSTATIN. [Concomitant]
     Active Substance: NYSTATIN
     Indication: PRODUCT USED FOR UNKNOWN INDICATION
     Dosage: DF
  5. TAMIFLU [Concomitant]
     Active Substance: OSELTAMIVIR PHOSPHATE
     Indication: CYSTIC FIBROSIS
     Dosage: DF
  6. ZONISAMIDE. [Concomitant]
     Active Substance: ZONISAMIDE
     Indication: CYSTIC FIBROSIS
     Dosage: DF
  7. BETHKIS [Suspect]
     Active Substance: TOBRAMYCIN
     Indication: PRODUCT USED FOR UNKNOWN INDICATION
     Dosage: BID
     Route: 055
     Dates: start: 20160106
  8. MEMANTINE. [Concomitant]
     Active Substance: MEMANTINE
     Indication: CYSTIC FIBROSIS
     Dosage: DF
  9. DOXYCYCLINE. [Concomitant]
     Active Substance: DOXYCYCLINE
     Indication: CYSTIC FIBROSIS
     Dosage: DF
  10. FLUCONAZOLE. [Concomitant]
     Active Substance: FLUCONAZOLE
     Indication: CYSTIC FIBROSIS
     Dosage: DF
  11. CIPROFLOXACIN. [Concomitant]
     Active Substance: CIPROFLOXACIN
     Indication: CYSTIC FIBROSIS
     Dosage: DF

REACTIONS (1)
  - Ill-defined disorder [Unknown]
